FAERS Safety Report 7866002-8 (Version None)
Quarter: 2011Q4

REPORT INFORMATION
  Report Type: 
  Country: None (occurrence: None)
  Receive Date: 20111028
  Receipt Date: 20110406
  Transmission Date: 20120403
  Serious: No
  Sender: FDA-Public Use
  Company Number: US-GLAXOSMITHKLINE-A0921657A

PATIENT
  Age: 39 Year
  Sex: Male

DRUGS (5)
  1. BYSTOLIC [Suspect]
     Route: 048
     Dates: start: 20080101
  2. ZOCOR [Suspect]
     Route: 065
     Dates: start: 20080101
  3. ADVAIR DISKUS 100/50 [Suspect]
     Indication: ASTHMA
     Route: 055
     Dates: start: 20080101
  4. BYSTOLIC [Concomitant]
  5. ZOCOR [Concomitant]

REACTIONS (4)
  - DIZZINESS [None]
  - DRUG INTERACTION [None]
  - CHEST PAIN [None]
  - DYSPNOEA [None]
